FAERS Safety Report 8401218-3 (Version None)
Quarter: 2012Q2

REPORT INFORMATION
  Report Type: 
  Country: None (occurrence: None)
  Receive Date: 20120601
  Receipt Date: 20120525
  Transmission Date: 20120825
  Serious: Yes (Other)
  Sender: FDA-Public Use
  Company Number: PHHY2012MX040076

PATIENT
  Age: 37 Year
  Sex: Female

DRUGS (3)
  1. GLEEVEC [Suspect]
     Indication: CHRONIC MYELOID LEUKAEMIA
     Dosage: 400 MG DAILY
     Route: 048
  2. GLEEVEC [Suspect]
     Dosage: 200 MG, DAILY
     Route: 048
     Dates: start: 20120524
  3. GLEEVEC [Suspect]
     Dosage: 600 MG DAILY
     Route: 048
     Dates: end: 20120327

REACTIONS (6)
  - DRUG INEFFECTIVE [None]
  - SHOCK [None]
  - GINGIVAL BLEEDING [None]
  - PYREXIA [None]
  - BONE PAIN [None]
  - CHRONIC MYELOID LEUKAEMIA [None]
